FAERS Safety Report 14930611 (Version 2)
Quarter: 2018Q2

REPORT INFORMATION
  Report Type: Spontaneous
  Country: US (occurrence: US)
  Receive Date: 20180523
  Receipt Date: 20180612
  Transmission Date: 20180711
  Serious: Yes (Death, Life-Threatening, Hospitalization, Other)
  Sender: FDA-Public Use
  Company Number: US-BIOGEN-2018BI00583003

PATIENT
  Age: 9 Year
  Sex: Male

DRUGS (1)
  1. SPINRAZA [Suspect]
     Active Substance: NUSINERSEN
     Indication: SPINAL MUSCULAR ATROPHY
     Route: 037
     Dates: start: 20170818, end: 20180515

REACTIONS (3)
  - Cardio-respiratory arrest [Unknown]
  - Brain death [Fatal]
  - Bronchial secretion retention [Not Recovered/Not Resolved]

NARRATIVE: CASE EVENT DATE: 20180502
